FAERS Safety Report 6914761-0 (Version None)
Quarter: 2010Q3

REPORT INFORMATION
  Report Type: 
  Country: None (occurrence: None)
  Receive Date: 20100809
  Receipt Date: 20100728
  Transmission Date: 20110219
  Serious: Yes (Other)
  Sender: FDA-Public Use
  Company Number: US-ELI_LILLY_AND_COMPANY-US201007007826

PATIENT
  Age: 17 Year
  Sex: Male

DRUGS (3)
  1. HUMATROPE [Suspect]
     Indication: GROWTH RETARDATION
     Dosage: 1 MG, UNKNOWN
     Dates: start: 20050101
  2. HUMATROPE [Suspect]
     Dosage: 3.6 MG, UNKNOWN
     Dates: end: 20070101
  3. SYNTHROID [Concomitant]

REACTIONS (9)
  - ABNORMAL BEHAVIOUR [None]
  - ADVERSE REACTION [None]
  - ARTHRALGIA [None]
  - ASTHMA [None]
  - AUTOIMMUNE THYROIDITIS [None]
  - INCORRECT DOSE ADMINISTERED [None]
  - MENTAL DISORDER [None]
  - PHOTOPHOBIA [None]
  - VISION BLURRED [None]
